FAERS Safety Report 7172802-2 (Version None)
Quarter: 2010Q4

REPORT INFORMATION
  Report Type: 
  Country: None (occurrence: None)
  Receive Date: 20101219
  Receipt Date: 20100213
  Transmission Date: 20110411
  Serious: No
  Sender: FDA-Public Use
  Company Number: US-AMGEN-KDL392782

PATIENT

DRUGS (9)
  1. ENBREL [Suspect]
     Indication: RHEUMATOID ARTHRITIS
     Dosage: 50 MG, QWK
     Route: 058
     Dates: start: 20091019
  2. ESOMEPRAZOLE MAGNESIUM [Concomitant]
  3. ATORVASTATIN CALCIUM [Concomitant]
  4. ALPRAZOLAM [Concomitant]
  5. DIPHENHYDRAMINE HYDROCHLORIDE [Concomitant]
  6. MULTI-VITAMINS [Concomitant]
  7. CALCIUM [Concomitant]
  8. ERGOCALCIFEROL [Concomitant]
  9. ACETYLSALICYLIC ACID [Concomitant]

REACTIONS (2)
  - MELANOCYTIC NAEVUS [None]
  - POSTOPERATIVE WOUND INFECTION [None]
